FAERS Safety Report 8246786 (Version 6)
Quarter: 2012Q4

REPORT INFORMATION
  Report Type: 
  Country: US (occurrence: US)
  Receive Date: 20111116
  Receipt Date: 20121029
  Transmission Date: 20130627
  Serious: Yes (Hospitalization, Other)
  Sender: FDA-Public Use
  Company Number: PHEH2011US08280

PATIENT
  Sex: Male

DRUGS (11)
  1. TASIGNA [Suspect]
     Indication: CHRONIC MYELOID LEUKAEMIA
     Dosage: 150 mg, QID
     Route: 048
     Dates: start: 20120420
  2. TASIGNA [Suspect]
     Dosage: 300 mg, BID
     Route: 048
  3. PROMETHAZINE [Suspect]
     Indication: NAUSEA
     Dosage: 25 mg, Q5H
  4. INSPRA [Concomitant]
     Dosage: 50 mg, BID
  5. NOVOLOG [Concomitant]
     Dosage: 250-300 Units per day
  6. CATAPRES-TTS-3 [Concomitant]
     Dosage: UNK UKN, UNK
  7. NITROGLYCERIN [Concomitant]
     Indication: PAIN
     Dosage: 4 mg, PRN
  8. ATIVAN [Concomitant]
     Dosage: 1 mg, as needed
  9. PERCOCET [Concomitant]
     Dosage: UNK UKN, UNK
  10. RANITIDINE HYDROCHLORIDE [Concomitant]
     Dosage: 1 mg, as needed
  11. LOPROX [Concomitant]
     Dosage: UNK UKN, UNK

REACTIONS (19)
  - Blood pressure increased [Unknown]
  - Diabetes mellitus [Unknown]
  - Gastric disorder [Unknown]
  - Hypopnoea [Unknown]
  - Nausea [Not Recovered/Not Resolved]
  - Diarrhoea [Unknown]
  - Dizziness [Unknown]
  - Headache [Unknown]
  - Cough [Unknown]
  - Rhinorrhoea [Unknown]
  - Pruritus [Unknown]
  - Herpes zoster [Unknown]
  - Malaise [Unknown]
  - Coronary artery occlusion [Unknown]
  - Chest discomfort [Unknown]
  - Chest pain [Recovered/Resolved]
  - Palpitations [Unknown]
  - Hypertriglyceridaemia [Unknown]
  - Haemorrhage [Unknown]
